FAERS Safety Report 15694745 (Version 1)
Quarter: 2018Q4

REPORT INFORMATION
  Report Type: Spontaneous
  Country: US (occurrence: US)
  Receive Date: 20181206
  Receipt Date: 20181206
  Transmission Date: 20190205
  Serious: No
  Sender: FDA-Public Use
  Company Number: US-ENDO PHARMACEUTICALS INC-2018-016074

PATIENT
  Sex: Male
  Weight: 74.83 kg

DRUGS (2)
  1. XIAFLEX [Suspect]
     Active Substance: COLLAGENASE CLOSTRIDIUM HISTOLYTICUM
     Indication: PEYRONIE^S DISEASE
     Dosage: UNK MG, FIRST CYCLE OF 2 INJECTIONS, UNKNOWN
     Route: 026
     Dates: start: 201710
  2. XIAFLEX [Suspect]
     Active Substance: COLLAGENASE CLOSTRIDIUM HISTOLYTICUM
     Dosage: UNK MG, SECOND CYCLE OF 2 INJECTIONS, UNKNOWN
     Route: 026
     Dates: start: 201712

REACTIONS (4)
  - Erectile dysfunction [None]
  - Wrong technique in product usage process [Unknown]
  - Penile pain [Recovered/Resolved]
  - Painful erection [Recovered/Resolved]

NARRATIVE: CASE EVENT DATE: 2017
